FAERS Safety Report 6846233-6 (Version None)
Quarter: 2010Q3

REPORT INFORMATION
  Report Type: 
  Country: None (occurrence: None)
  Receive Date: 20100715
  Receipt Date: 20071016
  Transmission Date: 20110219
  Serious: No
  Sender: FDA-Public Use
  Company Number: US-PFIZER INC-2007077008

PATIENT
  Sex: Female
  Weight: 65.8 kg

DRUGS (8)
  1. CHANTIX [Suspect]
     Indication: SMOKING CESSATION THERAPY
     Dates: start: 20070901
  2. STELAZINE [Concomitant]
  3. THORAZINE [Concomitant]
  4. ZOCOR [Concomitant]
  5. NEURONTIN [Concomitant]
  6. CALCIUM [Concomitant]
  7. IBANDRONATE SODIUM [Concomitant]
  8. HYDROCHLOROTHIAZIDE [Concomitant]
     Indication: HYPERTENSION

REACTIONS (1)
  - CONSTIPATION [None]
